FAERS Safety Report 8987362 (Version 1)
Quarter: 2012Q4

REPORT INFORMATION
  Report Type: 
  Country: US (occurrence: US)
  Receive Date: 20121226
  Receipt Date: 20121226
  Transmission Date: 20130627
  Serious: No
  Sender: FDA-Public Use
  Company Number: US-B.I. PHARMACEUTICALS,INC./RIDGEFIELD-2012-BI-03508BP

PATIENT
  Sex: Female

DRUGS (3)
  1. SPIRIVA [Suspect]
     Indication: EMPHYSEMA
     Dosage: 18 mcg
     Route: 055
     Dates: start: 2009, end: 20121130
  2. PRO-AIR [Concomitant]
  3. SYMBICORT [Concomitant]

REACTIONS (1)
  - Dyspnoea [Not Recovered/Not Resolved]
